FAERS Safety Report 24850211 (Version 2)
Quarter: 2025Q1

REPORT INFORMATION
  Report Type: Spontaneous
  Country: US (occurrence: US)
  Receive Date: 20250116
  Receipt Date: 20250328
  Transmission Date: 20250409
  Serious: Yes (Hospitalization, Other)
  Sender: BAYER HEALTHCARE PHARMACEUTICALS INC.
  Company Number: US-BAYER-2025A002934

PATIENT
  Age: 55 Year
  Sex: Female

DRUGS (2)
  1. ADEMPAS [Suspect]
     Active Substance: RIOCIGUAT
     Indication: Pulmonary arterial hypertension
     Dosage: UNK UNK, QD
     Route: 048
     Dates: start: 20221021
  2. ADEMPAS [Suspect]
     Active Substance: RIOCIGUAT
     Indication: Pulmonary arterial hypertension
     Dosage: UNK UNK, QD
     Route: 048
     Dates: start: 20221021

REACTIONS (5)
  - Central venous catheterisation [None]
  - Hypotension [None]
  - Hypotension [Recovered/Resolved]
  - Device dislocation [None]
  - Inappropriate schedule of product administration [None]

NARRATIVE: CASE EVENT DATE: 20240102
